FAERS Safety Report 5558933-9 (Version None)
Quarter: 2007Q4

REPORT INFORMATION
  Report Type: 
  Country: None (occurrence: None)
  Receive Date: 20071214
  Receipt Date: 20070912
  Transmission Date: 20080405
  Serious: Yes (Other)
  Sender: FDA-Public Use
  Company Number: US-ABBOTT-07P-163-0416905-00

PATIENT
  Sex: Female
  Weight: 63.106 kg

DRUGS (5)
  1. HUMIRA [Suspect]
     Indication: RHEUMATOID ARTHRITIS
     Route: 058
     Dates: start: 20070601
  2. ARTHROTEC [Concomitant]
     Indication: ANTIINFLAMMATORY THERAPY
  3. FOLIC ACID [Concomitant]
     Indication: VITAMIN SUPPLEMENTATION
  4. ALBUTEROL [Concomitant]
     Indication: ASTHMA
  5. METHOTREXATE [Concomitant]
     Indication: RHEUMATOID ARTHRITIS

REACTIONS (2)
  - ACCIDENTAL EXPOSURE [None]
  - HEADACHE [None]
